FAERS Safety Report 20563495 (Version 11)
Quarter: 2022Q4

REPORT INFORMATION
  Report Type: Report from Study
  Country: None (occurrence: CA)
  Receive Date: 20220308
  Receipt Date: 20221021
  Transmission Date: 20230112
  Serious: Yes (Hospitalization, Other)
  Sender: FDA-Public Use
  Company Number: CA-AKCEA THERAPEUTICS, INC.-2022IS001307

PATIENT
  Age: 62 Year
  Sex: Female
  Weight: 35.091 kg

DRUGS (20)
  1. TEGSEDI [Suspect]
     Active Substance: INOTERSEN SODIUM
     Indication: Hereditary neuropathic amyloidosis
     Route: 058
     Dates: start: 20200421
  2. DEVICE [Suspect]
     Active Substance: DEVICE
  3. LASIX [Suspect]
     Active Substance: FUROSEMIDE
     Route: 065
  4. VITAMIN C [Concomitant]
     Active Substance: ASCORBIC ACID
     Route: 048
  5. CLARITIN [Concomitant]
     Active Substance: LORATADINE
     Route: 048
  6. FOSFOMYCIN [Concomitant]
     Active Substance: FOSFOMYCIN
     Route: 048
     Dates: start: 2012
  7. LOMOTIL [Concomitant]
     Active Substance: ATROPINE SULFATE\DIPHENOXYLATE HYDROCHLORIDE
     Route: 065
  8. MIDODRINE [Concomitant]
     Active Substance: MIDODRINE
     Route: 048
     Dates: start: 2020
  9. VAGISIL /00104701/ [Concomitant]
     Route: 061
  10. VENIXXA [Concomitant]
     Route: 065
  11. RETINOL [Concomitant]
     Active Substance: RETINOL
     Route: 065
  12. ASCORBIC ACID W/VITAMIN D NOS [Concomitant]
     Route: 048
  13. EYE DROPS /00419602/ [Concomitant]
     Route: 047
  14. LAXATIVE /00064401/ [Concomitant]
     Route: 065
  15. TEGSEDI [Suspect]
     Active Substance: INOTERSEN SODIUM
     Route: 058
  16. TEGSEDI [Suspect]
     Active Substance: INOTERSEN SODIUM
     Route: 058
  17. TEGSEDI [Suspect]
     Active Substance: INOTERSEN SODIUM
     Route: 058
  18. TETRAHYDROZOLINE HYDROCHLORIDE [Concomitant]
     Active Substance: TETRAHYDROZOLINE HYDROCHLORIDE
     Route: 065
  19. TEGSEDI [Suspect]
     Active Substance: INOTERSEN SODIUM
     Route: 058
  20. CETIRIZINE HYDROCHLORIDE [Concomitant]
     Active Substance: CETIRIZINE HYDROCHLORIDE
     Route: 065

REACTIONS (58)
  - Upper limb fracture [Unknown]
  - Neuropathy peripheral [Unknown]
  - Loss of personal independence in daily activities [Unknown]
  - Faecaloma [Unknown]
  - Blood pressure abnormal [Not Recovered/Not Resolved]
  - Disease progression [Not Recovered/Not Resolved]
  - Dizziness [Not Recovered/Not Resolved]
  - Dysstasia [Unknown]
  - Fall [Unknown]
  - Feeling abnormal [Not Recovered/Not Resolved]
  - Heart rate decreased [Unknown]
  - Irritable bowel syndrome [Unknown]
  - Localised oedema [Unknown]
  - Malaise [Unknown]
  - Pollakiuria [Unknown]
  - Rehabilitation therapy [Unknown]
  - Urinary tract infection [Unknown]
  - Urine viscosity increased [Unknown]
  - Weight increased [Unknown]
  - Balance disorder [Unknown]
  - Constipation [Unknown]
  - Dehydration [Unknown]
  - Diarrhoea [Unknown]
  - Heart rate increased [Unknown]
  - Vertigo [Unknown]
  - Contusion [Unknown]
  - Hypotension [Not Recovered/Not Resolved]
  - Oedema peripheral [Unknown]
  - Influenza like illness [Not Recovered/Not Resolved]
  - Headache [Not Recovered/Not Resolved]
  - Nasopharyngitis [Unknown]
  - Rhinorrhoea [Unknown]
  - Nasal congestion [Unknown]
  - Aspiration [Unknown]
  - Dysphonia [Unknown]
  - Hypersensitivity [Unknown]
  - Dysphagia [Unknown]
  - Illness [Not Recovered/Not Resolved]
  - Nausea [Not Recovered/Not Resolved]
  - Presyncope [Unknown]
  - Cardiac disorder [Not Recovered/Not Resolved]
  - Gastrointestinal disorder [Not Recovered/Not Resolved]
  - Loss of consciousness [Not Recovered/Not Resolved]
  - Blood pressure fluctuation [Not Recovered/Not Resolved]
  - Flatulence [Not Recovered/Not Resolved]
  - Frequent bowel movements [Not Recovered/Not Resolved]
  - Abdominal discomfort [Not Recovered/Not Resolved]
  - Stiff leg syndrome [Not Recovered/Not Resolved]
  - Feeling cold [Not Recovered/Not Resolved]
  - Dyspepsia [Not Recovered/Not Resolved]
  - Injection site pain [Not Recovered/Not Resolved]
  - Orthostatic hypotension [Unknown]
  - Red blood cell count decreased [Unknown]
  - Fear of death [Unknown]
  - Movement disorder [Unknown]
  - Tremor [Unknown]
  - Neuralgia [Unknown]
  - Pain [Unknown]

NARRATIVE: CASE EVENT DATE: 20220322
